FAERS Safety Report 16355405 (Version 2)
Quarter: 2019Q2

REPORT INFORMATION
  Report Type: Spontaneous
  Country: US (occurrence: US)
  Receive Date: 20190525
  Receipt Date: 20190614
  Transmission Date: 20190711
  Serious: No
  Sender: FDA-Public Use
  Company Number: US-UNITED THERAPEUTICS-UNT-2019-009067

PATIENT
  Age: 40 Year
  Sex: Female
  Weight: 84.35 kg

DRUGS (3)
  1. REMODULIN [Suspect]
     Active Substance: TREPROSTINIL
     Indication: PULMONARY ARTERIAL HYPERTENSION
     Dosage: 0.093 ?G/KG, CONTINUING
     Route: 058
     Dates: start: 20131010
  2. ADEMPAS [Concomitant]
     Active Substance: RIOCIGUAT
     Indication: PRODUCT USED FOR UNKNOWN INDICATION
     Dosage: UNK
     Route: 065
  3. OPSUMIT [Concomitant]
     Active Substance: MACITENTAN
     Indication: PRODUCT USED FOR UNKNOWN INDICATION
     Dosage: UNK
     Route: 065

REACTIONS (7)
  - Flushing [Unknown]
  - Infusion site extravasation [Not Recovered/Not Resolved]
  - Respiratory tract infection [Unknown]
  - Oxygen saturation decreased [Unknown]
  - Dermatitis contact [Not Recovered/Not Resolved]
  - Diarrhoea [Unknown]
  - Infusion site irritation [Not Recovered/Not Resolved]

NARRATIVE: CASE EVENT DATE: 20190516
